FAERS Safety Report 19820649 (Version 2)
Quarter: 2021Q4

REPORT INFORMATION
  Report Type: Other
  Country: US (occurrence: US)
  Receive Date: 20210913
  Receipt Date: 20211201
  Transmission Date: 20220303
  Serious: Yes (Other)
  Sender: FDA-Public Use
  Company Number: US-INTERCEPT-PM2021002305

PATIENT
  Sex: Female

DRUGS (3)
  1. OCALIVA [Suspect]
     Active Substance: OBETICHOLIC ACID
     Indication: Primary biliary cholangitis
     Dosage: 5 MILLIGRAM, QD
     Route: 048
     Dates: start: 20210608
  2. OCALIVA [Suspect]
     Active Substance: OBETICHOLIC ACID
     Indication: Product use in unapproved indication
  3. URSODIOL [Concomitant]
     Active Substance: URSODIOL
     Dosage: UNK

REACTIONS (22)
  - Impaired gastric emptying [Recovering/Resolving]
  - Hypertension [Unknown]
  - Headache [Unknown]
  - Feeling abnormal [Unknown]
  - Hypersomnia [Unknown]
  - Aphasia [Unknown]
  - Hepatic pain [Unknown]
  - Memory impairment [Unknown]
  - Contusion [Unknown]
  - Haematoma [Unknown]
  - Decreased appetite [Unknown]
  - Urine output decreased [Unknown]
  - Muscle spasms [Unknown]
  - Hypophagia [Unknown]
  - Chromaturia [Unknown]
  - Nausea [Unknown]
  - Blood glucose increased [Recovering/Resolving]
  - Fatigue [Unknown]
  - Pruritus [Unknown]
  - Arthralgia [Unknown]
  - Dizziness [Unknown]
  - Abdominal pain [Unknown]

NARRATIVE: CASE EVENT DATE: 20210101
